FAERS Safety Report 5589768-9 (Version None)
Quarter: 2008Q1

REPORT INFORMATION
  Report Type: 
  Country: None (occurrence: None)
  Receive Date: 20080114
  Receipt Date: 20080104
  Transmission Date: 20080703
  Serious: Yes (Hospitalization)
  Sender: FDA-Public Use
  Company Number: PHRM2008FR00488

PATIENT
  Age: 51 Year
  Sex: Female

DRUGS (9)
  1. TEGRETOL [Suspect]
     Indication: EPILEPSY
     Dosage: 400 MG, BID
     Route: 048
     Dates: start: 20070915, end: 20071116
  2. TEGRETOL [Suspect]
     Dosage: 1200 MG/DAY
     Route: 048
     Dates: start: 20071117, end: 20071118
  3. AUGMENTIN                               /SCH/ [Concomitant]
     Dosage: 3 G/DAY
     Route: 048
     Dates: start: 20071116
  4. OFLOCET [Concomitant]
     Dosage: 400 MG/DAY
     Route: 048
     Dates: start: 20071116
  5. KETOPROFEN [Concomitant]
     Dosage: 300 MG/DAY
     Route: 048
     Dates: start: 20071116, end: 20071118
  6. XANAX [Concomitant]
  7. LEVOTHYROX [Concomitant]
  8. DAFALGAN [Concomitant]
     Dosage: UNK, UNK
  9. INIPOMP [Concomitant]

REACTIONS (8)
  - ANTICONVULSANT DRUG LEVEL INCREASED [None]
  - ASTHENIA [None]
  - DIZZINESS [None]
  - HYPERTHERMIA [None]
  - LUNG DISORDER [None]
  - MALAISE [None]
  - OVERDOSE [None]
  - TREMOR [None]
